FAERS Safety Report 18038294 (Version 1)
Quarter: 2020Q3

REPORT INFORMATION
  Report Type: Report from Study
  Country: None (occurrence: US)
  Receive Date: 20200718
  Receipt Date: 20200718
  Transmission Date: 20201103
  Serious: Yes (Hospitalization)
  Sender: FDA-Public Use
  Company Number: US-ABBVIE-19K-163-2866071-00

PATIENT
  Age: 77 Year
  Sex: Female
  Weight: 59.02 kg

DRUGS (6)
  1. HUMIRA [Suspect]
     Active Substance: ADALIMUMAB
     Route: 058
     Dates: start: 2019, end: 202003
  2. TRAMADOL. [Concomitant]
     Active Substance: TRAMADOL
     Indication: DISCOMFORT
  3. METHOTREXATE. [Concomitant]
     Active Substance: METHOTREXATE
     Indication: RHEUMATOID ARTHRITIS
  4. FOLIC ACID. [Concomitant]
     Active Substance: FOLIC ACID
     Indication: PRODUCT USED FOR UNKNOWN INDICATION
  5. HUMIRA [Suspect]
     Active Substance: ADALIMUMAB
     Route: 058
     Dates: start: 202003
  6. HUMIRA [Suspect]
     Active Substance: ADALIMUMAB
     Indication: RHEUMATOID ARTHRITIS
     Route: 058
     Dates: end: 2019

REACTIONS (4)
  - Fall [Recovered/Resolved]
  - Limb crushing injury [Recovering/Resolving]
  - Accident [Recovering/Resolving]
  - Upper limb fracture [Recovering/Resolving]

NARRATIVE: CASE EVENT DATE: 201907
